FAERS Safety Report 21769262 (Version 1)
Quarter: 2022Q4

REPORT INFORMATION
  Report Type: Report from Study
  Country: JP (occurrence: JP)
  Receive Date: 20221223
  Receipt Date: 20221223
  Transmission Date: 20230113
  Serious: Yes (Death)
  Sender: FDA-Public Use
  Company Number: JP-SERVIER-S22012526

PATIENT
  Age: 78 Year
  Sex: Female

DRUGS (1)
  1. ONIVYDE [Suspect]
     Active Substance: IRINOTECAN HYDROCHLORIDE
     Indication: Pancreatic carcinoma
     Route: 065
     Dates: start: 20220823, end: 20220823

REACTIONS (1)
  - Death [Fatal]

NARRATIVE: CASE EVENT DATE: 20221002
